FAERS Safety Report 24644731 (Version 1)
Quarter: 2024Q4

REPORT INFORMATION
  Report Type: Spontaneous
  Country: US (occurrence: US)
  Receive Date: 20241121
  Receipt Date: 20241121
  Transmission Date: 20250114
  Serious: No
  Sender: BIOGEN
  Company Number: US-BIOGEN-2024BI01290302

PATIENT
  Sex: Female

DRUGS (2)
  1. SPINRAZA [Suspect]
     Active Substance: NUSINERSEN
     Indication: Spinal muscular atrophy
     Route: 050
     Dates: start: 20190808, end: 20191023
  2. EVRYSDI [Concomitant]
     Active Substance: RISDIPLAM
     Indication: Spinal muscular atrophy
     Route: 050

REACTIONS (1)
  - Psoriasis [Not Recovered/Not Resolved]
